FAERS Safety Report 8441021 (Version 5)
Quarter: 2012Q4

REPORT INFORMATION
  Report Type: Spontaneous
  Country: JP (occurrence: None)
  Receive Date: 20120223
  Receipt Date: 20120910
  Transmission Date: 20130627
  Serious: Yes (Hospitalization, Other)
  Sender: FDA-Public Use
  Company Number: ADR-2012-00369

PATIENT
  Age: 6 Year
  Sex: Male
  Weight: 21 kg

DRUGS (1)
  1. BACLOFEN [Suspect]

REACTIONS (10)
  - Implant site effusion [None]
  - CSF culture positive [None]
  - Medical device complication [None]
  - Fluid retention [None]
  - Muscle spasticity [None]
  - Device breakage [None]
  - Product quality issue [None]
  - Staphylococcal infection [None]
  - Staphylococcal infection [None]
  - Implant site infection [None]
